FAERS Safety Report 4385843-5 (Version None)
Quarter: 2004Q2

REPORT INFORMATION
  Report Type: 
  Country: None (occurrence: None)
  Receive Date: 20040628
  Receipt Date: 20020118
  Transmission Date: 20050107
  Serious: Yes (Death, Other)
  Sender: FDA-Public Use
  Company Number: US-BRISTOL-MYERS SQUIBB COMPANY-11686730

PATIENT
  Age: 56 Year
  Sex: Female

DRUGS (12)
  1. PLACEBO [Suspect]
     Dosage: -RECEIVED THIRD COURSE OF TREATMENT
     Route: 042
     Dates: start: 20010531, end: 20020124
  2. METHOTREXATE [Suspect]
     Dates: start: 19990101, end: 20020222
  3. KLIOGEST [Suspect]
     Indication: MENOPAUSE
     Dates: start: 19930101, end: 20011001
  4. PREDNISONE [Concomitant]
     Dates: start: 20010101
  5. FLURBIPROFEN [Concomitant]
     Dates: start: 19920101
  6. OMEPRAZOLE [Concomitant]
     Dates: start: 20000101
  7. ZOLPIDEM [Concomitant]
     Dates: start: 19950101
  8. ALPRAZOLAM [Concomitant]
     Dates: start: 19980101
  9. FLUOXETINE [Concomitant]
     Dates: start: 19980101
  10. CALCIUM + VITAMIN D [Concomitant]
     Dates: start: 19990501
  11. FOLIC ACID [Concomitant]
     Dates: start: 19960101, end: 20020222
  12. TRAMADOL [Concomitant]
     Dates: start: 20020314

REACTIONS (2)
  - CYTOLYTIC HEPATITIS [None]
  - ENDOMETRIAL CANCER [None]
